FAERS Safety Report 23586274 (Version 1)
Quarter: 2024Q1

REPORT INFORMATION
  Report Type: Spontaneous
  Country: US (occurrence: None)
  Receive Date: 20240301
  Receipt Date: 20240301
  Transmission Date: 20240410
  Serious: Yes (Death)
  Sender: FDA-Public Use
  Company Number: None

PATIENT
  Age: 72 Year
  Sex: Female
  Weight: 49.5 kg

DRUGS (15)
  1. BIKTARVY [Suspect]
     Active Substance: BICTEGRAVIR SODIUM\EMTRICITABINE\TENOFOVIR ALAFENAMIDE FUMARATE
     Indication: HIV infection
     Dosage: FREQUENCY : DAILY;?
     Route: 048
  2. ADVAIR DISKUS [Concomitant]
     Active Substance: FLUTICASONE PROPIONATE\SALMETEROL XINAFOATE
     Dates: start: 20220504, end: 20240219
  3. AMLODIPINE [Concomitant]
     Active Substance: AMLODIPINE BESYLATE
     Dates: start: 20220404, end: 20240219
  4. Aspirin 81mg chewable [Concomitant]
     Dates: start: 20220404, end: 20240219
  5. FAMOTIDINE [Concomitant]
     Active Substance: FAMOTIDINE
     Dates: start: 20220404, end: 20240219
  6. GABAPENTIN [Concomitant]
     Active Substance: GABAPENTIN
     Dates: start: 20220404, end: 20240219
  7. HYDRALAZINE HYDROCHLORIDE [Concomitant]
     Active Substance: HYDRALAZINE HYDROCHLORIDE
     Dates: start: 20220404, end: 20240219
  8. LEVOTHYROXINE [Concomitant]
     Active Substance: LEVOTHYROXINE\LEVOTHYROXINE SODIUM
     Dates: start: 20220404, end: 20240219
  9. MELATONIN [Concomitant]
     Active Substance: MELATONIN
     Dates: start: 20220404, end: 20240219
  10. Metoprolol ER 25mg [Concomitant]
     Dates: start: 20220404, end: 20240219
  11. MIRTAZAPINE [Concomitant]
     Active Substance: MIRTAZAPINE
     Dates: start: 20220404, end: 20240219
  12. OMEPRAZOLE [Concomitant]
     Active Substance: OMEPRAZOLE
     Dates: start: 20220404, end: 20240219
  13. Tab-a-vite with Iron [Concomitant]
     Dates: start: 20220404, end: 20240219
  14. VENLAFAXINE [Concomitant]
     Active Substance: VENLAFAXINE HYDROCHLORIDE
     Dates: start: 20220404, end: 20240219
  15. Vitamin D3 2000 IU [Concomitant]
     Dates: start: 20220404, end: 20240219

REACTIONS (2)
  - Influenza [None]
  - Cardiac disorder [None]

NARRATIVE: CASE EVENT DATE: 20240219
